FAERS Safety Report 6955902-9 (Version None)
Quarter: 2010Q3

REPORT INFORMATION
  Report Type: 
  Country: None (occurrence: None)
  Receive Date: 20100830
  Receipt Date: 20100827
  Transmission Date: 20110219
  Serious: Yes (Other)
  Sender: FDA-Public Use
  Company Number: CO-ROCHE-723726

PATIENT
  Sex: Female

DRUGS (2)
  1. CELLCEPT [Suspect]
     Dosage: STOP DATE:DECEMBER 2009.
     Route: 048
     Dates: start: 20091222
  2. TACROLIMUS [Concomitant]
     Dosage: FREQUENCY:DAILY
     Route: 048

REACTIONS (1)
  - TRANSPLANT REJECTION [None]
